FAERS Safety Report 16904157 (Version 1)
Quarter: 2019Q4

REPORT INFORMATION
  Report Type: Spontaneous
  Country: CA (occurrence: CA)
  Receive Date: 20191010
  Receipt Date: 20191010
  Transmission Date: 20200122
  Serious: Yes (Death)
  Sender: FDA-Public Use
  Company Number: CA-PFIZER INC-2019433575

PATIENT
  Age: 49 Year
  Sex: Female

DRUGS (5)
  1. FLUOROURACIL. [Interacting]
     Active Substance: FLUOROURACIL
     Dosage: CYCLIC ADJUVANT CHEMOTHERAPY
  2. PIPERACILLIN. [Interacting]
     Active Substance: PIPERACILLIN SODIUM
     Dosage: UNK
  3. TOBRAMYCIN. [Interacting]
     Active Substance: TOBRAMYCIN
     Dosage: UNK
  4. CYCLOPHOSPHAMIDE. [Interacting]
     Active Substance: CYCLOPHOSPHAMIDE
     Indication: BREAST CANCER STAGE II
     Dosage: CYCLIC ADJUVANT CHEMOTHERAPY
  5. CLINDAMYCIN HCL [Suspect]
     Active Substance: CLINDAMYCIN HYDROCHLORIDE
     Indication: WOUND INFECTION
     Dosage: UNK
     Route: 048

REACTIONS (2)
  - Drug interaction [Fatal]
  - Pseudomembranous colitis [Fatal]
